FAERS Safety Report 13281912 (Version 1)
Quarter: 2017Q1

REPORT INFORMATION
  Report Type: Spontaneous
  Country: US (occurrence: US)
  Receive Date: 20170301
  Receipt Date: 20170301
  Transmission Date: 20170428
  Serious: No
  Sender: FDA-Public Use
  Company Number: US-FERRINGPH-2016FE01336

PATIENT
  Age: 51 Year
  Sex: Male
  Weight: 97.51 kg

DRUGS (1)
  1. DESMOPRESSIN [Suspect]
     Active Substance: DESMOPRESSIN
     Indication: DIABETES INSIPIDUS
     Dosage: 1 SPRAY DAILY AT 10 PM
     Route: 045
     Dates: start: 2013

REACTIONS (1)
  - Therapeutic response changed [Not Recovered/Not Resolved]

NARRATIVE: CASE EVENT DATE: 201602
